FAERS Safety Report 5767031-0 (Version None)
Quarter: 2008Q2

REPORT INFORMATION
  Report Type: 
  Country: None (occurrence: None)
  Receive Date: 20080612
  Receipt Date: 20080605
  Transmission Date: 20081010
  Serious: Yes (Death)
  Sender: FDA-Public Use
  Company Number: LU-JNJFOC-20080206357

PATIENT
  Age: 82 Year
  Sex: Female

DRUGS (2)
  1. RISPERDAL [Suspect]
     Indication: DRUG USE FOR UNKNOWN INDICATION
     Route: 048
  2. ASPIRIN [Concomitant]

REACTIONS (4)
  - CARDIAC ARREST [None]
  - CEREBROVASCULAR DISORDER [None]
  - DELIRIUM [None]
  - DISORIENTATION [None]
